FAERS Safety Report 10101224 (Version 2)
Quarter: 2014Q2

REPORT INFORMATION
  Report Type: Spontaneous
  Country: NG (occurrence: NG)
  Receive Date: 20140424
  Receipt Date: 20140625
  Transmission Date: 20141212
  Serious: Yes (Other)
  Sender: FDA-Public Use
  Company Number: NG-UCBSA-119153

PATIENT
  Age: 39 Year
  Sex: Female

DRUGS (5)
  1. XYZAL [Suspect]
     Indication: CHRONIC SINUSITIS
     Dosage: DAILY DOSE : 5MG
     Route: 048
     Dates: start: 20140324, end: 20140329
  2. PARACETAMOL [Concomitant]
  3. OMEPRAZOLE [Concomitant]
  4. ULGICID [Concomitant]
  5. ALDOMET [Concomitant]
     Dosage: UNK

REACTIONS (8)
  - Insomnia [Recovered/Resolved]
  - Asthenia [Recovered/Resolved]
  - Oedema peripheral [Recovered/Resolved]
  - Arthralgia [Recovered/Resolved]
  - Pain [Recovered/Resolved]
  - Fatigue [Recovered/Resolved]
  - Peripheral swelling [Recovered/Resolved]
  - Swelling face [Recovered/Resolved]
